FAERS Safety Report 11177628 (Version 2)
Quarter: 2015Q3

REPORT INFORMATION
  Report Type: Spontaneous
  Country: US (occurrence: US)
  Receive Date: 20150610
  Receipt Date: 20150706
  Transmission Date: 20151125
  Serious: No
  Sender: FDA-Public Use
  Company Number: US-PFIZER INC-2015191796

PATIENT
  Age: 22 Year
  Sex: Female

DRUGS (1)
  1. PROVERA [Suspect]
     Active Substance: MEDROXYPROGESTERONE ACETATE
     Indication: AMENORRHOEA
     Dosage: 10 MG, 1X/DAY (X 10 DAYS)
     Route: 048
     Dates: start: 20150602, end: 20150603

REACTIONS (6)
  - Palpitations [Unknown]
  - Nausea [Unknown]
  - Dizziness [Unknown]
  - Anxiety [Unknown]
  - Vomiting [Unknown]
  - Drug hypersensitivity [Recovered/Resolved]

NARRATIVE: CASE EVENT DATE: 20150602
